FAERS Safety Report 11436947 (Version 1)
Quarter: 2015Q3

REPORT INFORMATION
  Report Type: Spontaneous
  Country: US (occurrence: None)
  Receive Date: 20150831
  Receipt Date: 20150831
  Transmission Date: 20151125
  Serious: Yes (Other)
  Sender: FDA-Public Use
  Company Number: ADR-2015-01452

PATIENT
  Age: 41 Year
  Sex: Female

DRUGS (1)
  1. LIORESAL [Suspect]
     Active Substance: BACLOFEN
     Indication: MUSCLE SPASTICITY
     Dosage: 96MCG/DAY

REACTIONS (5)
  - Fall [None]
  - Vomiting [None]
  - Headache [None]
  - Muscle spasticity [None]
  - Nausea [None]
